FAERS Safety Report 5285253-2 (Version None)
Quarter: 2007Q1

REPORT INFORMATION
  Report Type: 
  Country: None (occurrence: None)
  Receive Date: 20070328
  Receipt Date: 20070312
  Transmission Date: 20070707
  Serious: Yes (Hospitalization)
  Sender: FDA-Public Use
  Company Number: 2007SP004981

PATIENT
  Age: 46 Year
  Sex: Male

DRUGS (5)
  1. PEG-INTRON [Suspect]
     Indication: HEPATITIS C
     Dosage: 50 MCG; QW; SC
     Route: 058
  2. INTRON A [Suspect]
     Indication: HEPATITIS C
     Dosage: 3 UNK; QD;
  3. REBETOL [Suspect]
     Indication: HEPATITIS C
     Dosage: ; QD;
  4. PEGINTERFERON ALFA-2A [Concomitant]
  5. RIBAVIRIN [Concomitant]

REACTIONS (3)
  - APPENDICITIS [None]
  - HEPATIC NEOPLASM MALIGNANT [None]
  - LIVER TRANSPLANT [None]
